FAERS Safety Report 16941070 (Version 3)
Quarter: 2020Q4

REPORT INFORMATION
  Report Type: Spontaneous
  Country: US (occurrence: US)
  Receive Date: 20191021
  Receipt Date: 20201105
  Transmission Date: 20210113
  Serious: Yes (Death, Other)
  Sender: FDA-Public Use
  Company Number: US-PFIZER INC-2019450861

PATIENT
  Age: 73 Year
  Sex: Female
  Weight: 52.15 kg

DRUGS (1)
  1. XELJANZ XR [Suspect]
     Active Substance: TOFACITINIB CITRATE
     Dosage: 11 MG, DAILY

REACTIONS (2)
  - Cataract [Recovered/Resolved]
  - Death [Fatal]

NARRATIVE: CASE EVENT DATE: 20201101
